FAERS Safety Report 13125692 (Version 1)
Quarter: 2017Q1

REPORT INFORMATION
  Report Type: Report from Study
  Country: None (occurrence: IT)
  Receive Date: 20170118
  Receipt Date: 20170118
  Transmission Date: 20170428
  Serious: Yes (Other)
  Sender: FDA-Public Use
  Company Number: IT-ABBVIE-17K-083-1839755-00

PATIENT
  Age: 75 Year
  Sex: Female

DRUGS (1)
  1. DUODOPA [Suspect]
     Active Substance: CARBIDOPA\LEVODOPA
     Indication: PARKINSON^S DISEASE
     Dosage: MD 9 +3, CR 4.3, ED 4
     Route: 050
     Dates: start: 20081127

REACTIONS (4)
  - Wrist fracture [Unknown]
  - Femur fracture [Unknown]
  - Movement disorder [Unknown]
  - Fall [Unknown]

NARRATIVE: CASE EVENT DATE: 20170107
